FAERS Safety Report 24039621 (Version 4)
Quarter: 2025Q2

REPORT INFORMATION
  Report Type: Spontaneous
  Country: US (occurrence: US)
  Receive Date: 20240702
  Receipt Date: 20250513
  Transmission Date: 20250717
  Serious: Yes (Hospitalization, Other)
  Sender: CSL BEHRING
  Company Number: US-BEH-2024173955

PATIENT
  Age: 29 Year
  Sex: Female

DRUGS (4)
  1. HAEGARDA [Suspect]
     Active Substance: HUMAN C1-ESTERASE INHIBITOR
     Indication: Hereditary angioedema
     Dosage: 2000 IU, BIW
     Route: 058
     Dates: start: 201810
  2. HAEGARDA [Suspect]
     Active Substance: HUMAN C1-ESTERASE INHIBITOR
     Indication: Prophylaxis
     Dosage: 5000 IU, BIW
     Route: 058
     Dates: start: 20181004
  3. HAEGARDA [Suspect]
     Active Substance: HUMAN C1-ESTERASE INHIBITOR
     Indication: Hereditary angioedema
     Dosage: 3000 IU, BIW
     Route: 058
     Dates: start: 201810
  4. HAEGARDA [Suspect]
     Active Substance: HUMAN C1-ESTERASE INHIBITOR
     Indication: Prophylaxis
     Dosage: 5000 IU, BIW
     Route: 058
     Dates: start: 201810

REACTIONS (9)
  - Tonsillitis [Unknown]
  - Pharyngeal swelling [Unknown]
  - Oropharyngeal pain [Unknown]
  - Hereditary angioedema [Not Recovered/Not Resolved]
  - Contusion [Unknown]
  - Headache [Unknown]
  - Injection site bruising [Unknown]
  - Product use issue [Unknown]
  - Weight decreased [Unknown]

NARRATIVE: CASE EVENT DATE: 20241102
